FAERS Safety Report 5908917-3 (Version None)
Quarter: 2008Q4

REPORT INFORMATION
  Report Type: 
  Country: None (occurrence: None)
  Receive Date: 20081006
  Receipt Date: 20080925
  Transmission Date: 20090506
  Serious: Yes (Hospitalization)
  Sender: FDA-Public Use
  Company Number: FR-MERCK-0809FRA00089

PATIENT
  Age: 75 Year
  Sex: Female

DRUGS (12)
  1. PRIMAXIN [Suspect]
     Indication: SEPTIC SHOCK
     Route: 042
     Dates: start: 20080813, end: 20080823
  2. TEICOPLANIN [Suspect]
     Indication: SEPTIC SHOCK
     Route: 042
     Dates: start: 20080813, end: 20080823
  3. AMIKACIN SULFATE [Suspect]
     Indication: SEPTIC SHOCK
     Route: 047
     Dates: start: 20080813, end: 20080818
  4. CIPROFLOXACIN [Concomitant]
     Indication: SEPTIC SHOCK
     Route: 065
     Dates: start: 20080818, end: 20080823
  5. FLUCONAZOLE [Suspect]
     Indication: SEPTIC SHOCK
     Route: 042
     Dates: start: 20080813, end: 20080823
  6. INSULIN [Concomitant]
     Indication: DIABETES MELLITUS
     Route: 058
  7. HEPARIN [Concomitant]
     Indication: THROMBOSIS PROPHYLAXIS
     Route: 065
  8. ACEBUTOLOL [Concomitant]
     Route: 048
  9. BROMAZEPAM [Concomitant]
     Indication: ANXIETY
     Route: 048
  10. PRAVASTATIN SODIUM [Concomitant]
     Indication: DYSLIPIDAEMIA
     Route: 048
  11. PHLOROGLUCINOL AND TRIMETHYLPHLOROGLUCINOL [Concomitant]
     Indication: ABDOMINAL PAIN
     Route: 048
  12. TRIMEBUTINE [Concomitant]
     Route: 048

REACTIONS (1)
  - RASH MORBILLIFORM [None]
